FAERS Safety Report 9111796 (Version 1)
Quarter: 2013Q1

REPORT INFORMATION
  Report Type: Spontaneous
  Country: US (occurrence: US)
  Receive Date: 20130219
  Receipt Date: 20130219
  Transmission Date: 20140127
  Serious: No
  Sender: FDA-Public Use
  Company Number: US-BRISTOL-MYERS SQUIBB COMPANY-16664922

PATIENT
  Age: 73 Year
  Sex: Female
  Weight: 81.63 kg

DRUGS (4)
  1. ORENCIA [Suspect]
     Indication: RHEUMATOID ARTHRITIS
     Dosage: ORENCIA START: OCT11?PRESCRIPTION #:  1376560-02?LAST DATE OF INJECTION:  05JUN2012
     Route: 058
     Dates: start: 2012
  2. METFORMIN [Concomitant]
  3. ASPIRIN [Concomitant]
  4. LISINOPRIL [Concomitant]

REACTIONS (2)
  - Visual acuity reduced [Not Recovered/Not Resolved]
  - Medication error [Recovered/Resolved]
